FAERS Safety Report 19958678 (Version 2)
Quarter: 2022Q4

REPORT INFORMATION
  Report Type: Report from Study
  Country: NL (occurrence: NL)
  Receive Date: 20211015
  Receipt Date: 20221019
  Transmission Date: 20230113
  Serious: Yes (Hospitalization, Other)
  Sender: FDA-Public Use
  Company Number: NL-PFIZER INC-202101352797

PATIENT
  Age: 28 Year
  Sex: Female

DRUGS (3)
  1. PREGABALIN [Suspect]
     Active Substance: PREGABALIN
     Dosage: 4200 MG (DOSE (MGKG-1)/46.7)
     Route: 048
  2. PREGABALIN [Suspect]
     Active Substance: PREGABALIN
     Dosage: 4200 MG
     Route: 065
  3. PREGABALIN [Suspect]
     Active Substance: PREGABALIN
     Dosage: 46.7 MG/KG
     Route: 065

REACTIONS (8)
  - Hypothermia [Unknown]
  - Bradypnoea [Unknown]
  - Somnolence [Unknown]
  - Hypokalaemia [Unknown]
  - Intentional overdose [Unknown]
  - Electrocardiogram T wave inversion [Unknown]
  - Toxicity to various agents [Unknown]
  - Prescribed overdose [Unknown]
